FAERS Safety Report 12749264 (Version 3)
Quarter: 2016Q4

REPORT INFORMATION
  Report Type: Report from Study
  Country: None (occurrence: US)
  Receive Date: 20160915
  Receipt Date: 20161104
  Transmission Date: 20170207
  Serious: Yes (Life-Threatening, Hospitalization)
  Sender: FDA-Public Use
  Company Number: US-ABBVIE-16K-163-1724639-00

PATIENT
  Age: 56 Year
  Sex: Male

DRUGS (1)
  1. HUMIRA [Suspect]
     Active Substance: ADALIMUMAB
     Indication: PSORIATIC ARTHROPATHY
     Route: 058
     Dates: start: 201608, end: 201608

REACTIONS (14)
  - Muscle rupture [Unknown]
  - Gait disturbance [Unknown]
  - Depression [Unknown]
  - Back injury [Unknown]
  - Inflammation [Unknown]
  - Dysstasia [Unknown]
  - Osteitis [Unknown]
  - Sciatica [Unknown]
  - Discomfort [Unknown]
  - Intervertebral disc protrusion [Unknown]
  - Anxiety [Unknown]
  - Pain [Unknown]
  - Staphylococcal infection [Unknown]
  - Activities of daily living impaired [Unknown]

NARRATIVE: CASE EVENT DATE: 2016
